FAERS Safety Report 9806361 (Version 1)
Quarter: 2014Q1

REPORT INFORMATION
  Report Type: Spontaneous
  Country: US (occurrence: US)
  Receive Date: 20140109
  Receipt Date: 20140109
  Transmission Date: 20141002
  Serious: Yes (Death)
  Sender: FDA-Public Use
  Company Number: US-BAYER-2014-003207

PATIENT
  Age: 56 Year
  Sex: Male

DRUGS (10)
  1. DEXTROMETHORPHAN (ROMILAR, XINLI) +/- GUAIFENESIN [Suspect]
  2. DIPHENHYDRAMINE HYDROCHLORIDE [Suspect]
     Route: 048
  3. ACETAMINOPHEN W/HYDROCODONE [Suspect]
     Route: 048
  4. OXYCODONE [Suspect]
     Route: 048
  5. FENTANYL [Suspect]
  6. PENTAZOCINE [Suspect]
  7. BUTALBITAL [Suspect]
     Route: 048
  8. ZOLPIDEM [Suspect]
     Route: 048
  9. AMITRIPTYLINE [Suspect]
     Route: 048
  10. PROPOXYPHENE [Suspect]
     Route: 048

REACTIONS (1)
  - Drug abuse [Fatal]
